FAERS Safety Report 7653005-1 (Version None)
Quarter: 2011Q3

REPORT INFORMATION
  Report Type: 
  Country: None (occurrence: None)
  Receive Date: 20110803
  Receipt Date: 20110712
  Transmission Date: 20111222
  Serious: No
  Sender: FDA-Public Use
  Company Number: US-BAYER-2011-061755

PATIENT
  Age: 71 Year
  Sex: Female
  Weight: 68.027 kg

DRUGS (12)
  1. ALEVE (CAPLET) [Suspect]
     Indication: ARTHRITIS
     Dosage: 1 DF, QD, BOTTLE COUNT 100S
     Route: 048
     Dates: start: 20110412, end: 20110710
  2. ZYRTEC [Concomitant]
  3. AMBIEN [Concomitant]
  4. FISH OIL [Concomitant]
  5. SYNTHROID [Concomitant]
  6. VITAMIN D [Concomitant]
  7. VASOTEC [Concomitant]
  8. VITAMIN B-12 [Concomitant]
  9. MULTI-VITAMIN [Concomitant]
  10. RED YEAST RICE [Concomitant]
  11. CHONDROITIN W/GLUCOSAMINE [Concomitant]
  12. LOVASTATIN [Concomitant]

REACTIONS (1)
  - RASH PAPULAR [None]
